FAERS Safety Report 4825840-6 (Version None)
Quarter: 2005Q4

REPORT INFORMATION
  Report Type: 
  Country: None (occurrence: None)
  Receive Date: 20051111
  Receipt Date: 20051102
  Transmission Date: 20060501
  Serious: Yes (Hospitalization)
  Sender: FDA-Public Use
  Company Number: US-JNJFOC-20050902688

PATIENT
  Sex: Female
  Weight: 105.69 kg

DRUGS (4)
  1. REMICADE [Suspect]
     Route: 042
  2. REMICADE [Suspect]
     Indication: RHEUMATOID ARTHRITIS
     Route: 042
  3. DARVOCET-N 100 [Concomitant]
  4. DARVOCET-N 100 [Concomitant]

REACTIONS (4)
  - COUGH [None]
  - FALL [None]
  - JOINT DISLOCATION [None]
  - STAPHYLOCOCCAL INFECTION [None]
